FAERS Safety Report 14217553 (Version 2)
Quarter: 2017Q4

REPORT INFORMATION
  Report Type: Spontaneous
  Country: FR (occurrence: FR)
  Receive Date: 20171123
  Receipt Date: 20171212
  Transmission Date: 20180321
  Serious: Yes (Other)
  Sender: FDA-Public Use
  Company Number: FR-MERCK KGAA-2034951

PATIENT
  Sex: Female

DRUGS (1)
  1. NOVOTHYROX [Suspect]
     Active Substance: LEVOTHYROXINE SODIUM
     Indication: PRODUCT USED FOR UNKNOWN INDICATION

REACTIONS (14)
  - Thyroxine increased [None]
  - Frequent bowel movements [None]
  - Depression [None]
  - Headache [None]
  - Eye disorder [None]
  - Fatigue [None]
  - Hyperthyroidism [None]
  - Myalgia [None]
  - Alopecia [None]
  - Dysstasia [None]
  - Weight decreased [None]
  - Psoriasis [None]
  - Pain [None]
  - Blood test abnormal [None]
